FAERS Safety Report 24874046 (Version 1)
Quarter: 2025Q1

REPORT INFORMATION
  Report Type: Spontaneous
  Country: US (occurrence: US)
  Receive Date: 20250122
  Receipt Date: 20250122
  Transmission Date: 20250409
  Serious: No
  Sender: LEO PHARM
  Company Number: US-LEO Pharma-377033

PATIENT
  Age: 56 Year
  Sex: Female

DRUGS (1)
  1. ADBRY [Suspect]
     Active Substance: TRALOKINUMAB-LDRM
     Indication: Eczema
     Dates: start: 202412

REACTIONS (4)
  - Injection site pain [Unknown]
  - Joint swelling [Recovering/Resolving]
  - Injection site haemorrhage [Unknown]
  - Rash [Not Recovered/Not Resolved]
